FAERS Safety Report 8349948-6 (Version None)
Quarter: 2012Q2

REPORT INFORMATION
  Report Type: 
  Country: None (occurrence: None)
  Receive Date: 20120510
  Receipt Date: 20120429
  Transmission Date: 20120825
  Serious: No
  Sender: FDA-Public Use
  Company Number: US-BAYER-2012-044656

PATIENT

DRUGS (4)
  1. NAPROXEN SODIUM [Suspect]
     Indication: HEADACHE
     Route: 048
  2. ACETAMINOPHEN [Concomitant]
     Indication: HEADACHE
  3. IBUPROFEN (ADVIL) [Concomitant]
     Indication: HEADACHE
  4. IBUPROFEN [Concomitant]
     Indication: HEADACHE

REACTIONS (1)
  - HEADACHE [None]
